FAERS Safety Report 15080016 (Version 1)
Quarter: 2018Q2

REPORT INFORMATION
  Report Type: Spontaneous
  Country: US (occurrence: US)
  Receive Date: 20180627
  Receipt Date: 20180627
  Transmission Date: 20180711
  Serious: Yes (Other)
  Sender: FDA-Public Use
  Company Number: US-TEVA-2018-US-913334

PATIENT
  Sex: Female

DRUGS (1)
  1. COPAXONE [Suspect]
     Active Substance: GLATIRAMER ACETATE
     Dosage: FORM STRENGTH: UNKNOWN

REACTIONS (7)
  - Abdominal pain [Unknown]
  - Tremor [Unknown]
  - Flushing [Unknown]
  - Feeling hot [Unknown]
  - Back pain [Unknown]
  - Pain in extremity [Unknown]
  - Dyspnoea [Unknown]
